FAERS Safety Report 19855541 (Version 1)
Quarter: 2021Q3

REPORT INFORMATION
  Report Type: Spontaneous
  Country: US (occurrence: US)
  Receive Date: 20210920
  Receipt Date: 20210920
  Transmission Date: 20211014
  Serious: Yes (Other)
  Sender: FDA-Public Use
  Company Number: None

PATIENT
  Age: 71 Year
  Sex: Male
  Weight: 78 kg

DRUGS (20)
  1. ACETAMINOPHEN. [Concomitant]
     Active Substance: ACETAMINOPHEN
     Dates: start: 20210908, end: 20210914
  2. CLONIDINE. [Concomitant]
     Active Substance: CLONIDINE
     Dates: start: 20210909, end: 20210914
  3. CEFTRIAXONE. [Concomitant]
     Active Substance: CEFTRIAXONE
     Dates: start: 20210908, end: 20210908
  4. NIFEDIPINE. [Concomitant]
     Active Substance: NIFEDIPINE
     Dates: start: 20210909, end: 20210914
  5. CEFTRIAXONE. [Concomitant]
     Active Substance: CEFTRIAXONE
     Dates: start: 20210909, end: 20210912
  6. BENZONATATE. [Concomitant]
     Active Substance: BENZONATATE
     Dates: start: 20210910, end: 20210914
  7. INSULIN REGULAR [Concomitant]
     Active Substance: INSULIN NOS
     Dates: start: 20210908, end: 20210908
  8. ONDANSETRON [Concomitant]
     Active Substance: ONDANSETRON
     Dates: start: 20210908, end: 20210914
  9. HEPARIN [Concomitant]
     Active Substance: HEPARIN SODIUM
     Dates: start: 20210910, end: 20210914
  10. CEFDINIR. [Concomitant]
     Active Substance: CEFDINIR
     Dates: start: 20210912, end: 20210914
  11. REMDESIVIR. [Suspect]
     Active Substance: REMDESIVIR
     Indication: COVID-19 PNEUMONIA
     Route: 040
     Dates: start: 20210908, end: 20210910
  12. AZITHROMYCIN ANHYDROUS. [Concomitant]
     Active Substance: AZITHROMYCIN ANHYDROUS
     Dates: start: 20210908, end: 20210910
  13. HYDRALAZINE [Concomitant]
     Active Substance: HYDRALAZINE HYDROCHLORIDE
     Dates: start: 20210908, end: 20210910
  14. NITROGLYCERIN. [Concomitant]
     Active Substance: NITROGLYCERIN
     Dates: start: 20210908, end: 20210910
  15. VANCOMYCIN IV [Concomitant]
     Active Substance: VANCOMYCIN HYDROCHLORIDE
     Dates: start: 20210908, end: 20210908
  16. SODIUM BICARBONATE. [Concomitant]
     Active Substance: SODIUM BICARBONATE
     Dates: start: 20210908, end: 20210908
  17. METOPROLOL. [Concomitant]
     Active Substance: METOPROLOL
     Dates: start: 20210909, end: 20210914
  18. VANCOMYCIN PO [Concomitant]
     Dates: start: 20210909, end: 20210912
  19. DEXAMETHASONE. [Concomitant]
     Active Substance: DEXAMETHASONE
     Dates: start: 20210908, end: 20210914
  20. PIPERACILLIN AND TAZOBACTAM [Concomitant]
     Active Substance: PIPERACILLIN SODIUM\TAZOBACTAM SODIUM
     Dates: start: 20210908, end: 20210909

REACTIONS (1)
  - Alanine aminotransferase increased [None]

NARRATIVE: CASE EVENT DATE: 20210912
